FAERS Safety Report 26055918 (Version 1)
Quarter: 2025Q4

REPORT INFORMATION
  Report Type: Report from Study
  Country: GB (occurrence: GB)
  Receive Date: 20251118
  Receipt Date: 20251118
  Transmission Date: 20260118
  Serious: Yes (Death)
  Sender: IPSEN BIOPHARMACEUTICALS, INC.
  Company Number: GB-IPSEN Group, Research and Development-2025-28282

PATIENT
  Age: 35 Year
  Sex: Male

DRUGS (2)
  1. LANREOTIDE [Suspect]
     Active Substance: LANREOTIDE
     Indication: Acromegaly
     Dosage: DEEP SUBCUTANEOUS
  2. LANREOTIDE [Suspect]
     Active Substance: LANREOTIDE
     Indication: Gigantism

REACTIONS (1)
  - Death [Fatal]

NARRATIVE: CASE EVENT DATE: 20250101
